FAERS Safety Report 4790062-4 (Version None)
Quarter: 2005Q4

REPORT INFORMATION
  Report Type: 
  Country: None (occurrence: None)
  Receive Date: 20051005
  Receipt Date: 20051005
  Transmission Date: 20060501
  Serious: No
  Sender: FDA-Public Use
  Company Number: None

PATIENT
  Age: 53 Year
  Sex: Male
  Weight: 46 kg

DRUGS (5)
  1. COLISTIN  150 MG [Suspect]
     Indication: EMPYEMA
     Dosage: 150 MG EVERY 12 HOURS IV
     Route: 042
     Dates: start: 20050912, end: 20050918
  2. MULTI-VITAMIN [Concomitant]
  3. FOLIC ACID [Concomitant]
  4. HEPARIN [Concomitant]
  5. THIAMINE [Concomitant]

REACTIONS (2)
  - BLOOD CREATININE INCREASED [None]
  - RENAL IMPAIRMENT [None]
